FAERS Safety Report 4813285-4 (Version None)
Quarter: 2005Q4

REPORT INFORMATION
  Report Type: 
  Country: None (occurrence: None)
  Receive Date: 20051026
  Receipt Date: 20051011
  Transmission Date: 20060501
  Serious: Yes (Hospitalization)
  Sender: FDA-Public Use
  Company Number: USA0510110599

PATIENT
  Age: 48 Year
  Sex: Female

DRUGS (3)
  1. FORTEO [Suspect]
     Indication: BONE DISORDER
     Dates: start: 20050701
  2. COUMADIN [Concomitant]
  3. PREDNISONE [Concomitant]

REACTIONS (4)
  - FALL [None]
  - FOOT FRACTURE [None]
  - PERIPHERAL NERVE OPERATION [None]
  - PHARMACEUTICAL PRODUCT COMPLAINT [None]
